FAERS Safety Report 8889221 (Version 1)
Quarter: 2012Q4

REPORT INFORMATION
  Report Type: 
  Country: US (occurrence: US)
  Receive Date: 20121106
  Receipt Date: 20121106
  Transmission Date: 20130627
  Serious: No
  Sender: FDA-Public Use
  Company Number: US-BAYER-2012-110593

PATIENT
  Age: 25 Year
  Sex: Female

DRUGS (2)
  1. YAZ [Suspect]
     Dosage: UNK
     Route: 048
  2. NEXT CHOICE ONE DOSE [Concomitant]
     Dosage: UNK
     Route: 048
     Dates: start: 201209

REACTIONS (1)
  - Pollakiuria [None]
